FAERS Safety Report 14536438 (Version 4)
Quarter: 2018Q1

REPORT INFORMATION
  Report Type: Report from Study
  Country: BR (occurrence: BR)
  Receive Date: 20180215
  Receipt Date: 20180302
  Transmission Date: 20180509
  Serious: Yes (Hospitalization)
  Sender: FDA-Public Use
  Company Number: PHHY2018BR025457

PATIENT
  Sex: Male

DRUGS (4)
  1. EXELON PATCH [Suspect]
     Active Substance: RIVASTIGMINE
     Indication: DEMENTIA ALZHEIMER^S TYPE
     Dosage: 4.6 MG, QD PATCH 5 (CM2) ( PATCH A DAY)
     Route: 062
     Dates: start: 201801
  2. QUETIAPINE. [Suspect]
     Active Substance: QUETIAPINE
     Indication: PRODUCT USED FOR UNKNOWN INDICATION
     Route: 065
  3. EXELON PATCH [Suspect]
     Active Substance: RIVASTIGMINE
     Indication: DEMENTIA
  4. COMBODART [Concomitant]
     Active Substance: DUTASTERIDE\TAMSULOSIN
     Indication: PROSTATIC DISORDER
     Dosage: 1 DF (0.5+0.4 MG), UNK
     Route: 065

REACTIONS (13)
  - Agitation [Not Recovered/Not Resolved]
  - Somnolence [Recovering/Resolving]
  - Anxiety [Not Recovered/Not Resolved]
  - Insomnia [Recovering/Resolving]
  - Panic disorder [Recovering/Resolving]
  - Dysuria [Not Recovered/Not Resolved]
  - Mental disorder [Recovering/Resolving]
  - Increased appetite [Not Recovered/Not Resolved]
  - Dyspnoea [Recovering/Resolving]
  - Pancreatitis [Not Recovered/Not Resolved]
  - Asthenia [Recovering/Resolving]
  - Nervousness [Recovering/Resolving]
  - Fear [Recovering/Resolving]
